FAERS Safety Report 4580206-1 (Version None)
Quarter: 2005Q1

REPORT INFORMATION
  Report Type: 
  Country: None (occurrence: None)
  Receive Date: 20050211
  Receipt Date: 20041201
  Transmission Date: 20050727
  Serious: Yes (Other)
  Sender: FDA-Public Use
  Company Number: 2224

PATIENT
  Age: 9 Year
  Sex: Male

DRUGS (4)
  1. PHENOBARBITAL TAB [Suspect]
     Indication: CONVULSION
     Dosage: 30 MG 3 B.I.D. X 2 ORAL
     Route: 048
  2. NEURONTIN [Concomitant]
  3. TOPIMAX [Concomitant]
  4. ALLEGRA [Concomitant]

REACTIONS (2)
  - DRUG LEVEL INCREASED [None]
  - PHARMACEUTICAL PRODUCT COMPLAINT [None]
